FAERS Safety Report 23637186 (Version 6)
Quarter: 2025Q2

REPORT INFORMATION
  Report Type: Spontaneous
  Country: US (occurrence: US)
  Receive Date: 20240315
  Receipt Date: 20250429
  Transmission Date: 20250717
  Serious: Yes (Other)
  Sender: PFIZER
  Company Number: US-PFIZER INC-PV202300030261

PATIENT
  Age: 85 Year
  Sex: Female
  Weight: 57.15 kg

DRUGS (18)
  1. IBRANCE [Suspect]
     Active Substance: PALBOCICLIB
     Indication: Breast cancer metastatic
     Dosage: 125 MG EVERY DAY
     Route: 048
     Dates: start: 20230125, end: 20230830
  2. IBRANCE [Suspect]
     Active Substance: PALBOCICLIB
     Dosage: 125 MG EVERY OTHER DAY
     Route: 048
     Dates: start: 20230128, end: 20240103
  3. IBRANCE [Suspect]
     Active Substance: PALBOCICLIB
     Route: 048
     Dates: start: 20230830, end: 20240521
  4. IBRANCE [Suspect]
     Active Substance: PALBOCICLIB
     Route: 048
     Dates: start: 20240131, end: 20240425
  5. ATRIDOX [Concomitant]
     Active Substance: DOXYCYCLINE HYCLATE
     Dosage: QD (ONCE A DAY)
  6. ALPRAZOLAM [Concomitant]
     Active Substance: ALPRAZOLAM
     Dosage: 1 THREE TIMES A DAY (TID)
     Route: 048
     Dates: start: 20221229
  7. ANASTROZOLE [Concomitant]
     Active Substance: ANASTROZOLE
     Dosage: TAKE 1 TABLET ONCE DAILY WITH OR WITHOUT FOOD
     Route: 048
     Dates: start: 20250129
  8. ASPIRIN [Concomitant]
     Active Substance: ASPIRIN
     Dosage: TAKE 1 ONCE DAILY
     Route: 048
     Dates: start: 20250319
  9. COENZYME Q10 [Concomitant]
     Active Substance: DIETARY SUPPLEMENT\UBIDECARENONE
     Dosage: TAKE 1 ONCE DAILY AT DINNER
     Route: 048
     Dates: start: 20230113
  10. CYANOCOBALAMIN [Concomitant]
     Active Substance: CYANOCOBALAMIN
     Dosage: EVERY OTHER DAY
     Dates: start: 20230113
  11. ELIQUIS [Concomitant]
     Active Substance: APIXABAN
     Dosage: TAKE 1 TWICE DAILY
     Route: 048
     Dates: start: 20221229
  12. EZETIMIBE [Concomitant]
     Active Substance: EZETIMIBE
     Dosage: TAKE 1 ONCE DAILY
     Route: 048
     Dates: start: 20221229
  13. FAMOTIDINE [Concomitant]
     Active Substance: FAMOTIDINE
     Dosage: TAKE 1 TABLET EVERY DAY
     Route: 048
     Dates: start: 20240715
  14. ACETAMINOPHEN\HYDROCODONE [Concomitant]
     Active Substance: ACETAMINOPHEN\HYDROCODONE
     Dosage: HYDROCODONE 7.5 MG-ACETAMINOPHEN 325 MG TABLET; 1 THREE TIMES A DAY (TID) PRN PAIN EXEMPT G89.3
     Route: 048
     Dates: start: 20250311
  15. MEGESTROL ACETATE [Concomitant]
     Active Substance: MEGESTROL ACETATE
     Indication: Appetite disorder
     Dosage: MEGESTROL ACET 40 MG/ML SUSP; TAKE 10ML TWICE A DAY FOR APPETITE
     Route: 048
     Dates: start: 20240109
  16. METOPROLOL TARTRATE [Concomitant]
     Active Substance: METOPROLOL TARTRATE
     Dosage: TAKE 1 TWICE DAILY
     Route: 048
     Dates: start: 20221229
  17. DIETARY SUPPLEMENT [Concomitant]
     Active Substance: DIETARY SUPPLEMENT
     Dosage: TAKE 1 ONCE DAILY AT DINNER TIME
     Route: 048
     Dates: start: 20230113
  18. VITAMIN D3 [Concomitant]
     Active Substance: CHOLECALCIFEROL
     Dosage: VITAMIN D3 25 MCG (1000 UNIT) CAPSULE; TAKE 1 ONCE DAILY AT DINNER TIME
     Route: 048
     Dates: start: 20230113

REACTIONS (6)
  - Chronic kidney disease [Unknown]
  - Nephrogenic anaemia [Unknown]
  - Full blood count decreased [Recovering/Resolving]
  - Fatigue [Not Recovered/Not Resolved]
  - Urinary tract infection [Recovering/Resolving]
  - Off label use [Unknown]

NARRATIVE: CASE EVENT DATE: 20230128
